FAERS Safety Report 12797359 (Version 1)
Quarter: 2016Q3

REPORT INFORMATION
  Report Type: Report from Study
  Country: IN (occurrence: IN)
  Receive Date: 20160930
  Receipt Date: 20160930
  Transmission Date: 20161109
  Serious: Yes (Disabling, Other)
  Sender: FDA-Public Use
  Company Number: PHHY2016IN131139

PATIENT
  Age: 41 Year
  Sex: Male
  Weight: 99 kg

DRUGS (5)
  1. SCAPHO [Suspect]
     Active Substance: SECUKINUMAB
     Dosage: UNK , UNK
     Route: 058
     Dates: start: 20160801
  2. SCAPHO [Suspect]
     Active Substance: SECUKINUMAB
     Indication: PSORIASIS
     Dosage: 300 MG, UNK
     Route: 058
     Dates: start: 20160726
  3. SCAPHO [Suspect]
     Active Substance: SECUKINUMAB
     Dosage: UNK , UNK
     Route: 058
     Dates: start: 20160808
  4. SCAPHO [Suspect]
     Active Substance: SECUKINUMAB
     Dosage: UNK , UNK
     Route: 058
     Dates: start: 20160815
  5. SCAPHO [Suspect]
     Active Substance: SECUKINUMAB
     Dosage: 300 MG, UNK
     Route: 058
     Dates: start: 20160822

REACTIONS (5)
  - Hypokinesia [Unknown]
  - Mobility decreased [Unknown]
  - Psoriasis [Unknown]
  - Arthralgia [Not Recovered/Not Resolved]
  - Condition aggravated [Not Recovered/Not Resolved]

NARRATIVE: CASE EVENT DATE: 20160801
